FAERS Safety Report 6779926-X (Version None)
Quarter: 2010Q2

REPORT INFORMATION
  Report Type: 
  Country: None (occurrence: None)
  Receive Date: 20100618
  Receipt Date: 20100610
  Transmission Date: 20101027
  Serious: Yes (Hospitalization)
  Sender: FDA-Public Use
  Company Number: HU-SHIRE-CQT2-2010-00016

PATIENT

DRUGS (4)
  1. ANAGRELIDE HCL [Suspect]
     Indication: ESSENTIAL THROMBOCYTHAEMIA
     Dosage: 1.5 MG, 1X/DAY:QD
     Route: 048
     Dates: start: 20100419, end: 20100609
  2. ANAGRELIDE HCL [Suspect]
     Dosage: 1 MG, 1X/DAY:QD
     Route: 048
     Dates: start: 20100125, end: 20100208
  3. ANAGRELIDE HCL [Suspect]
     Dosage: 1.5 MG, 1X/DAY:QD
     Route: 048
     Dates: start: 20100208, end: 20100407
  4. ANAGRELIDE HCL [Suspect]
     Dosage: 2 MG, 1X/DAY:QD
     Route: 048
     Dates: start: 20100408, end: 20100419

REACTIONS (3)
  - HYPERGLYCAEMIA [None]
  - HYPERTENSIVE CRISIS [None]
  - LEFT VENTRICULAR FAILURE [None]
